FAERS Safety Report 10475489 (Version 1)
Quarter: 2014Q3

REPORT INFORMATION
  Report Type: Spontaneous
  Country: US (occurrence: None)
  Receive Date: 20140924
  Receipt Date: 20140924
  Transmission Date: 20150326
  Serious: Yes (Hospitalization)
  Sender: FDA-Public Use
  Company Number: None

PATIENT
  Age: 73 Year
  Sex: Female
  Weight: 107 kg

DRUGS (12)
  1. SYNTHROID [Concomitant]
     Active Substance: LEVOTHYROXINE SODIUM
  2. OMEPRAZOLE. [Concomitant]
     Active Substance: OMEPRAZOLE
  3. HYDROCODONE [Concomitant]
     Active Substance: HYDROCODONE
  4. LASIX [Concomitant]
     Active Substance: FUROSEMIDE
  5. VIT [Concomitant]
  6. ZOLOFT [Concomitant]
     Active Substance: SERTRALINE HYDROCHLORIDE
  7. STOOL SOFTENERS [Concomitant]
     Active Substance: UNSPECIFIED INGREDIENT
  8. RAMIPRIL. [Suspect]
     Active Substance: RAMIPRIL
     Indication: HYPERTENSION
     Dosage: CHRONIC
     Route: 048
  9. COREG [Concomitant]
     Active Substance: CARVEDILOL
  10. DIAZEPAM. [Concomitant]
     Active Substance: DIAZEPAM
  11. ASA [Concomitant]
     Active Substance: ASPIRIN
  12. PRAVASTATIN [Concomitant]
     Active Substance: PRAVASTATIN\PRAVASTATIN SODIUM

REACTIONS (4)
  - Hypoaldosteronism [None]
  - Renal failure [None]
  - Hyperkalaemia [None]
  - Condition aggravated [None]

NARRATIVE: CASE EVENT DATE: 20140319
